FAERS Safety Report 7460683-9 (Version None)
Quarter: 2011Q2

REPORT INFORMATION
  Report Type: 
  Country: None (occurrence: None)
  Receive Date: 20110505
  Receipt Date: 20110503
  Transmission Date: 20111010
  Serious: Yes (Hospitalization)
  Sender: FDA-Public Use
  Company Number: AU-AMGEN-AUSCT2011018148

PATIENT
  Age: 71 Year
  Sex: Male
  Weight: 66 kg

DRUGS (13)
  1. ENOXAPARIN SODIUM [Concomitant]
     Dosage: 60 MG, BID
     Route: 058
     Dates: start: 20110329
  2. DOCETAXEL [Concomitant]
     Dosage: UNK
     Dates: start: 20110111
  3. ALFUZOSIN HCL [Concomitant]
     Dosage: 10 MG, QD
     Route: 048
     Dates: start: 20100915
  4. OXYNORM [Concomitant]
     Dosage: 5 MG, PRN
     Route: 048
     Dates: start: 20101230
  5. STEMETIL [Concomitant]
     Dosage: 5 MG, TID
     Dates: start: 20110131
  6. METOCLOPRAMIDE [Concomitant]
     Dosage: 10 MG, QID
     Route: 042
     Dates: start: 20110117
  7. CISPLATIN [Concomitant]
     Dosage: 103 MG, UNK
     Dates: start: 20110111
  8. ALLOPURINOL [Concomitant]
     Dosage: 300 MG, QD
     Route: 048
  9. FLUOROURACIL [Concomitant]
     Dosage: 2957 MG, UNK
     Dates: start: 20110111
  10. DEXAMETHASONE [Concomitant]
     Dosage: 4 MG, QD
     Route: 048
     Dates: start: 20100117
  11. PANTOPRAZOLE [Concomitant]
     Dosage: 40 MG, QD
     Route: 048
     Dates: start: 20110118
  12. PANITUMUMAB [Suspect]
     Indication: GASTROOESOPHAGEAL CANCER
     Dosage: UNK
     Dates: start: 20110111
  13. DOXYCYCLINE [Concomitant]
     Dosage: 50 MG, QD
     Route: 048
     Dates: start: 20110117

REACTIONS (2)
  - NAUSEA [None]
  - LETHARGY [None]
